FAERS Safety Report 9755059 (Version 3)
Quarter: 2014Q1

REPORT INFORMATION
  Report Type: Spontaneous
  Country: BR (occurrence: BR)
  Receive Date: 20131213
  Receipt Date: 20140107
  Transmission Date: 20141002
  Serious: Yes (Death, Hospitalization, Other)
  Sender: FDA-Public Use
  Company Number: BR-PFIZER INC-2013356527

PATIENT
  Age: 87 Year
  Sex: Female

DRUGS (4)
  1. LYRICA [Suspect]
     Indication: DIABETIC NEPHROPATHY
     Dosage: 1 TABLET (AS REPORTED) OF STRENGTH 75 MG, AT NIGHT
     Route: 048
  2. PURAN T4 [Suspect]
     Indication: THYROID DISORDER
     Dosage: UNK
  3. GABAPENTIN [Concomitant]
     Dosage: UNK
  4. MAREVAN [Concomitant]
     Indication: CEREBROVASCULAR ACCIDENT

REACTIONS (13)
  - Death [Fatal]
  - Renal impairment [Unknown]
  - Escherichia infection [Unknown]
  - Cardiac arrest [Unknown]
  - Kidney infection [Unknown]
  - Blood glucose increased [Unknown]
  - Thrombosis [Unknown]
  - Fall [Unknown]
  - Chromaturia [Unknown]
  - Gastrointestinal disorder [Unknown]
  - Pyrexia [Unknown]
  - Somnolence [Unknown]
  - Blood urine present [Unknown]
